FAERS Safety Report 23910540 (Version 9)
Quarter: 2025Q1

REPORT INFORMATION
  Report Type: Spontaneous
  Country: US (occurrence: US)
  Receive Date: 20240528
  Receipt Date: 20250327
  Transmission Date: 20250408
  Serious: Yes (Hospitalization, Other)
  Sender: PFIZER
  Company Number: US-PFIZER INC-202400178616

PATIENT
  Age: 45 Year
  Sex: Female
  Weight: 45.351 kg

DRUGS (1)
  1. NIVESTYM [Suspect]
     Active Substance: FILGRASTIM-AAFI
     Indication: Chemotherapy
     Dosage: 0.5 MG, 1X/DAY
     Route: 042
     Dates: start: 20240521, end: 20240523

REACTIONS (8)
  - Drug hypersensitivity [Not Recovered/Not Resolved]
  - Rash [Not Recovered/Not Resolved]
  - Lip swelling [Not Recovered/Not Resolved]
  - Myelosuppression [Unknown]
  - Vertebral osteophyte [Unknown]
  - Feeling hot [Unknown]
  - Rash erythematous [Unknown]
  - Skin discolouration [Unknown]

NARRATIVE: CASE EVENT DATE: 20240524
